FAERS Safety Report 14752056 (Version 7)
Quarter: 2022Q3

REPORT INFORMATION
  Report Type: Spontaneous
  Country: US (occurrence: US)
  Receive Date: 20180412
  Receipt Date: 20220721
  Transmission Date: 20221026
  Serious: No
  Sender: FDA-Public Use
  Company Number: US-PFIZER INC-2018148737

PATIENT
  Age: 11 Year
  Sex: Male
  Weight: 40.816 kg

DRUGS (5)
  1. GENOTROPIN [Suspect]
     Active Substance: SOMATROPIN
     Indication: Growth hormone deficiency
     Dosage: 1.6 MG, DAILY
     Dates: start: 201802
  2. GENOTROPIN [Suspect]
     Active Substance: SOMATROPIN
     Indication: Short stature
     Dosage: HE TURNS THE PEN TO 2.0
  3. GENOTROPIN [Suspect]
     Active Substance: SOMATROPIN
     Dosage: 2 MG, 1X/DAY, (GENOTROPIN 2.0MG SUBCUTANEOUS INJECTION NIGHTLY GIVEN)
     Route: 058
     Dates: end: 20190421
  4. GENOTROPIN [Suspect]
     Active Substance: SOMATROPIN
     Dosage: UNK, 1X/DAY (2.2 A DAY BY INJECTION)
     Dates: start: 201902
  5. GENOTROPIN [Suspect]
     Active Substance: SOMATROPIN
     Dosage: 2 MG, 1X/DAY, (GENOTROPIN 2.0MG SUBCUTANEOUS INJECTION NIGHTLY GIVEN)
     Route: 058

REACTIONS (2)
  - Product dose omission issue [Unknown]
  - Rash pruritic [Unknown]

NARRATIVE: CASE EVENT DATE: 20200324
